FAERS Safety Report 4775086-5 (Version None)
Quarter: 2005Q3

REPORT INFORMATION
  Report Type: 
  Country: None (occurrence: None)
  Receive Date: 20050919
  Receipt Date: 20050903
  Transmission Date: 20060218
  Serious: Yes (Other)
  Sender: FDA-Public Use
  Company Number: UK144933

PATIENT
  Age: 72 Year
  Sex: Male

DRUGS (5)
  1. ARANESP [Suspect]
     Indication: MYELODYSPLASTIC SYNDROME
     Dosage: 150 MCG, 1 IN 1 WEEKS, SC
     Route: 058
     Dates: start: 20041103, end: 20050627
  2. ASPIRIN [Concomitant]
  3. SIMVASTATIN [Concomitant]
  4. ALFUZOSIN [Concomitant]
  5. FINASTERIDE [Concomitant]

REACTIONS (8)
  - ANTIBODY TEST POSITIVE [None]
  - APLASIA PURE RED CELL [None]
  - DRUG TOLERANCE DECREASED [None]
  - HAEMOGLOBIN DECREASED [None]
  - PARVOVIRUS INFECTION [None]
  - RETICULOCYTE COUNT INCREASED [None]
  - THERAPY NON-RESPONDER [None]
  - THYMOMA [None]
